FAERS Safety Report 11177173 (Version 1)
Quarter: 2015Q2

REPORT INFORMATION
  Report Type: Spontaneous
  Country: US (occurrence: None)
  Receive Date: 20150608
  Receipt Date: 20150608
  Transmission Date: 20150821
  Serious: No
  Sender: FDA-Public Use
  Company Number: None

PATIENT
  Age: 30 Year
  Sex: Female
  Weight: 90.72 kg

DRUGS (1)
  1. CLOBETASOL PROPIONATE. [Suspect]
     Active Substance: CLOBETASOL PROPIONATE
     Indication: ECZEMA

REACTIONS (5)
  - Erythema [None]
  - Skin disorder [None]
  - Inflammation [None]
  - Insomnia [None]
  - Drug withdrawal syndrome [None]

NARRATIVE: CASE EVENT DATE: 20150525
